FAERS Safety Report 11039952 (Version 10)
Quarter: 2018Q2

REPORT INFORMATION
  Report Type: Report from Study
  Country: CA (occurrence: CA)
  Receive Date: 20150416
  Receipt Date: 20180626
  Transmission Date: 20180711
  Serious: Yes (Death, Other)
  Sender: FDA-Public Use
  Company Number: CA-INCYTE CORPORATION-2013IN001155

PATIENT

DRUGS (2)
  1. WARFARIN [Suspect]
     Active Substance: WARFARIN
     Indication: PRODUCT USED FOR UNKNOWN INDICATION
     Dosage: UNK
     Route: 065
  2. JAKAVI [Suspect]
     Active Substance: RUXOLITINIB
     Indication: MYELOFIBROSIS
     Dosage: 10 MG, BID
     Route: 048
     Dates: start: 20130301

REACTIONS (15)
  - Pigmentation disorder [Recovered/Resolved]
  - Abdominal pain lower [Recovered/Resolved]
  - Fall [Unknown]
  - Platelet count decreased [Unknown]
  - Contusion [Unknown]
  - Skin cancer [Unknown]
  - Malaise [Unknown]
  - Rash papular [Unknown]
  - Rash pruritic [Unknown]
  - Second primary malignancy [Unknown]
  - Mass [Unknown]
  - Rash [Unknown]
  - Death [Fatal]
  - Balance disorder [Unknown]
  - Dizziness [Unknown]

NARRATIVE: CASE EVENT DATE: 201303
